FAERS Safety Report 14171382 (Version 1)
Quarter: 2017Q4

REPORT INFORMATION
  Report Type: Spontaneous
  Country: JP (occurrence: JP)
  Receive Date: 20171108
  Receipt Date: 20171108
  Transmission Date: 20180321
  Serious: Yes (Hospitalization)
  Sender: FDA-Public Use
  Company Number: JP-SA-2017SA214474

PATIENT
  Age: 83 Year
  Sex: Male

DRUGS (1)
  1. AMARYL [Suspect]
     Active Substance: GLIMEPIRIDE
     Indication: TYPE 2 DIABETES MELLITUS
     Route: 048

REACTIONS (6)
  - Cerebral infarction [Unknown]
  - Choking [Unknown]
  - Cyanosis [Unknown]
  - Hypoglycaemia [Unknown]
  - Apallic syndrome [Unknown]
  - Muscle rigidity [Unknown]

NARRATIVE: CASE EVENT DATE: 20171007
